FAERS Safety Report 14214457 (Version 1)
Quarter: 2017Q4

REPORT INFORMATION
  Report Type: Spontaneous
  Country: US (occurrence: US)
  Receive Date: 20171122
  Receipt Date: 20171122
  Transmission Date: 20180321
  Serious: No
  Sender: FDA-Public Use
  Company Number: US-ROCHE-1861554

PATIENT
  Age: 77 Year
  Sex: Male

DRUGS (3)
  1. MEMANTINE. [Concomitant]
     Active Substance: MEMANTINE
     Indication: DEMENTIA ALZHEIMER^S TYPE
  2. PULMOZYME [Suspect]
     Active Substance: DORNASE ALFA
     Indication: DEMENTIA ALZHEIMER^S TYPE
  3. PULMOZYME [Suspect]
     Active Substance: DORNASE ALFA
     Indication: COGNITIVE DISORDER
     Dosage: 1500 KU/MG
     Route: 065

REACTIONS (2)
  - Off label use [Unknown]
  - No adverse event [Unknown]
